FAERS Safety Report 6906567-3 (Version None)
Quarter: 2010Q3

REPORT INFORMATION
  Report Type: 
  Country: None (occurrence: None)
  Receive Date: 20100804
  Receipt Date: 20100726
  Transmission Date: 20110219
  Serious: Yes (Hospitalization, Disabling)
  Sender: FDA-Public Use
  Company Number: US-BAYER-201026975NA

PATIENT
  Age: 34 Year
  Sex: Female
  Weight: 76 kg

DRUGS (1)
  1. YAZ [Suspect]
     Indication: CONTRACEPTION
     Route: 048
     Dates: start: 20071101, end: 20100628

REACTIONS (2)
  - PAIN IN EXTREMITY [None]
  - THROMBOSIS [None]
